FAERS Safety Report 4705523-3 (Version None)
Quarter: 2005Q2

REPORT INFORMATION
  Report Type: 
  Country: None (occurrence: None)
  Receive Date: 20050629
  Receipt Date: 20041012
  Transmission Date: 20051028
  Serious: Yes (Death, Hospitalization, Other)
  Sender: FDA-Public Use
  Company Number: 200412481EU

PATIENT
  Age: 48 Year
  Sex: Female
  Weight: 54 kg

DRUGS (8)
  1. FLUOROURACIL [Suspect]
     Indication: BREAST CANCER
     Dosage: 500 MG/M**2/DAY IV
     Route: 042
     Dates: start: 20040526, end: 20040707
  2. EPIRUBICIN [Suspect]
     Indication: BREAST CANCER
     Dosage: 100 MG/M**2/DAY IV
     Route: 042
     Dates: start: 20040526, end: 20040707
  3. CYCLOPHOSPHAMIDE [Suspect]
     Indication: BREAST CANCER
     Dosage: 500 MG/M**2/DAY IV
     Route: 042
     Dates: start: 20040526, end: 20040707
  4. SINGULAIR [Concomitant]
  5. SERETIDE [Concomitant]
  6. ATROVENT [Concomitant]
  7. TILDIEM RETARD [Concomitant]
  8. ZANTAC [Concomitant]

REACTIONS (6)
  - CARDIAC FAILURE [None]
  - LUNG INFECTION [None]
  - PNEUMONIA [None]
  - PNEUMOTHORAX [None]
  - RESPIRATORY DISTRESS [None]
  - SEPSIS [None]
